FAERS Safety Report 4607712-5 (Version None)
Quarter: 2005Q1

REPORT INFORMATION
  Report Type: 
  Country: None (occurrence: None)
  Receive Date: 20050310
  Receipt Date: 20050303
  Transmission Date: 20050727
  Serious: No
  Sender: FDA-Public Use
  Company Number: ZONI002122

PATIENT
  Age: 19 Year
  Sex: Female

DRUGS (2)
  1. EXCEGRAN (ZONISAMIDE) [Suspect]
     Indication: EPILEPSY
     Dosage: 100 MG, 2 IN 1 D, ORAL
     Route: 048
     Dates: start: 20050120, end: 20050203
  2. DEPAKENE [Concomitant]

REACTIONS (5)
  - ERYTHEMA [None]
  - PLATELET COUNT DECREASED [None]
  - RUBELLA [None]
  - VIRAL INFECTION [None]
  - WHITE BLOOD CELL COUNT DECREASED [None]
